FAERS Safety Report 7406505-3 (Version None)
Quarter: 2011Q2

REPORT INFORMATION
  Report Type: 
  Country: None (occurrence: None)
  Receive Date: 20110411
  Receipt Date: 20110329
  Transmission Date: 20111010
  Serious: Yes (Death)
  Sender: FDA-Public Use
  Company Number: NL-CELGENEUS-114-C5013-11033256

PATIENT
  Sex: Male

DRUGS (4)
  1. CC-5013\PLACEBO [Suspect]
     Indication: PROSTATE CANCER
     Dosage: 25 MILLIGRAM
     Route: 048
     Dates: start: 20101130, end: 20101214
  2. ASCAL [Concomitant]
     Indication: PROPHYLAXIS
     Route: 065
     Dates: start: 20101130, end: 20101214
  3. PREDNISONE [Suspect]
     Indication: PROSTATE CANCER
     Dosage: 10 MILLIGRAM
     Route: 065
     Dates: start: 20101130, end: 20101214
  4. DOCETAXEL [Suspect]
     Indication: PROSTATE CANCER
     Dosage: 160 MILLIGRAM
     Route: 065
     Dates: start: 20101130, end: 20101130

REACTIONS (1)
  - DEATH [None]
